FAERS Safety Report 15765269 (Version 4)
Quarter: 2019Q1

REPORT INFORMATION
  Report Type: Report from Study
  Country: MX (occurrence: MX)
  Receive Date: 20181227
  Receipt Date: 20190327
  Transmission Date: 20190417
  Serious: Yes (Other)
  Sender: FDA-Public Use
  Company Number: MX-SA-2018SA277112

PATIENT
  Age: 43 Year
  Sex: Female
  Weight: 77 kg

DRUGS (1)
  1. ALEMTUZUMAB [Suspect]
     Active Substance: ALEMTUZUMAB
     Indication: MULTIPLE SCLEROSIS
     Dosage: 1 DF, QD
     Route: 041
     Dates: start: 201703

REACTIONS (39)
  - Mean cell haemoglobin concentration abnormal [Not Recovered/Not Resolved]
  - Monocyte percentage abnormal [Not Recovered/Not Resolved]
  - Neutrophil count abnormal [Not Recovered/Not Resolved]
  - Urine abnormality [Not Recovered/Not Resolved]
  - Lymphocyte percentage decreased [Unknown]
  - Purpura [Unknown]
  - Haematocrit abnormal [Not Recovered/Not Resolved]
  - Platelet count abnormal [Not Recovered/Not Resolved]
  - Neutrophil percentage abnormal [Unknown]
  - Nitrite urine present [Not Recovered/Not Resolved]
  - Monocyte percentage decreased [Unknown]
  - Monocyte count decreased [Unknown]
  - Protein total increased [Unknown]
  - Haemoglobin abnormal [Not Recovered/Not Resolved]
  - Mean cell volume abnormal [Not Recovered/Not Resolved]
  - Blood creatinine abnormal [Not Recovered/Not Resolved]
  - Neutrophil count increased [Unknown]
  - Bacteriuria [Not Recovered/Not Resolved]
  - Thrombocytopenic purpura [Unknown]
  - C-reactive protein increased [Unknown]
  - Monocyte count abnormal [Not Recovered/Not Resolved]
  - Haemoglobin decreased [Unknown]
  - Blood thyroid stimulating hormone [Unknown]
  - Eosinophil percentage decreased [Unknown]
  - Red blood cell abnormality [Not Recovered/Not Resolved]
  - Mean platelet volume abnormal [Not Recovered/Not Resolved]
  - Mean cell haemoglobin [Not Recovered/Not Resolved]
  - Lymphocyte percentage abnormal [Not Recovered/Not Resolved]
  - Haematocrit decreased [Unknown]
  - Urine leukocyte esterase positive [Not Recovered/Not Resolved]
  - Anti-thyroid antibody [Unknown]
  - Haemoglobin urine present [Not Recovered/Not Resolved]
  - Vasculitis [Unknown]
  - Eosinophil percentage abnormal [Not Recovered/Not Resolved]
  - Tri-iodothyronine [Not Recovered/Not Resolved]
  - Blood alkaline phosphatase increased [Unknown]
  - Red cell distribution width abnormal [Not Recovered/Not Resolved]
  - White blood cell count abnormal [Not Recovered/Not Resolved]
  - Red cell distribution width increased [Unknown]

NARRATIVE: CASE EVENT DATE: 201807
